FAERS Safety Report 10039095 (Version 1)
Quarter: 2014Q1

REPORT INFORMATION
  Report Type: Spontaneous
  Country: US (occurrence: None)
  Receive Date: 20140306
  Receipt Date: 20140306
  Transmission Date: 20141002
  Serious: Yes (Disabling, Other)
  Sender: FDA-Public Use
  Company Number: 163-21880-13062039

PATIENT
  Age: 78 Year
  Sex: Male
  Weight: 70.31 kg

DRUGS (6)
  1. REVLIMID [Suspect]
     Indication: PLASMA CELL MYELOMA
     Dosage: 21 IN 28 DAYS, PO
     Route: 048
     Dates: start: 20130404, end: 20130606
  2. VELCADE (BORTEZOMIB) [Suspect]
  3. DEXAMETHASONE (DEXAMETHASONE) [Concomitant]
  4. B 12 [Concomitant]
  5. LORATADINE [Concomitant]
  6. OMEPRAZOLE (OMEPRAZOLE) [Concomitant]

REACTIONS (3)
  - Rash [None]
  - Pancytopenia [None]
  - Body temperature increased [None]
